FAERS Safety Report 20658781 (Version 1)
Quarter: 2022Q1

REPORT INFORMATION
  Report Type: Spontaneous
  Country: US (occurrence: US)
  Receive Date: 20220331
  Receipt Date: 20220331
  Transmission Date: 20220424
  Serious: Yes (Death, Other)
  Sender: FDA-Public Use
  Company Number: US-SA-SAC20220330001573

PATIENT
  Age: 87 Year
  Sex: Male

DRUGS (1)
  1. ZANTAC [Suspect]
     Active Substance: RANITIDINE HYDROCHLORIDE
     Indication: Dyspepsia
     Dosage: UNK UNK, QD
     Dates: start: 199606, end: 200706

REACTIONS (3)
  - Renal cancer [Fatal]
  - Prostate cancer [Fatal]
  - Bladder cancer [Fatal]

NARRATIVE: CASE EVENT DATE: 20161101
